FAERS Safety Report 5399148-7 (Version None)
Quarter: 2007Q3

REPORT INFORMATION
  Report Type: 
  Country: None (occurrence: None)
  Receive Date: 20070727
  Receipt Date: 20070723
  Transmission Date: 20080115
  Serious: Yes (Hospitalization, Other)
  Sender: FDA-Public Use
  Company Number: US-BAYER-200711952BWH

PATIENT
  Age: 60 Year
  Sex: Female

DRUGS (8)
  1. NEXAVAR [Suspect]
     Indication: HEPATIC NEOPLASM MALIGNANT
     Dosage: TOTAL DAILY DOSE: 400 MG  UNIT DOSE: 200 MG
     Route: 048
     Dates: start: 20070410, end: 20070524
  2. SYNTHROID [Concomitant]
  3. MAFITO [Concomitant]
  4. SPIRONOLACTONE [Concomitant]
  5. NEXIUM [Concomitant]
  6. LIMOTOL [Concomitant]
  7. COMPAZINE [Concomitant]
  8. ATIVAN [Concomitant]

REACTIONS (5)
  - ABDOMINAL DISCOMFORT [None]
  - ADVERSE DRUG REACTION [None]
  - ASCITES [None]
  - DRUG INEFFECTIVE [None]
  - HEPATIC NEOPLASM MALIGNANT [None]
